FAERS Safety Report 7558299-9 (Version None)
Quarter: 2011Q2

REPORT INFORMATION
  Report Type: 
  Country: None (occurrence: None)
  Receive Date: 20110620
  Receipt Date: 20110603
  Transmission Date: 20111010
  Serious: No
  Sender: FDA-Public Use
  Company Number: US-B.I. PHARMACEUTICALS,INC./RIDGEFIELD-2011-BP-13294BP

PATIENT
  Age: 83 Year
  Sex: Female
  Weight: 52.62 kg

DRUGS (4)
  1. SPIRIVA [Suspect]
     Indication: CHRONIC OBSTRUCTIVE PULMONARY DISEASE
     Dosage: 18 MCG
     Dates: start: 20050620, end: 20110408
  2. TYLENOL-500 [Concomitant]
     Dosage: 3000 MG
  3. SPIRIVA [Suspect]
     Indication: ASTHMA
  4. NORVASC [Concomitant]

REACTIONS (1)
  - RESPIRATORY TRACT CONGESTION [None]
